FAERS Safety Report 4372217-6 (Version None)
Quarter: 2004Q2

REPORT INFORMATION
  Report Type: 
  Country: None (occurrence: None)
  Receive Date: 20040607
  Receipt Date: 20040527
  Transmission Date: 20050107
  Serious: Yes (Life-Threatening, Hospitalization)
  Sender: FDA-Public Use
  Company Number: US-AMGEN-US078101

PATIENT
  Sex: Female

DRUGS (4)
  1. NEULASTA [Suspect]
     Indication: CHEMOTHERAPY
     Route: 058
     Dates: start: 20040505, end: 20040505
  2. CYTOXAN [Concomitant]
     Dates: end: 20040504
  3. FLUOROURACIL [Concomitant]
     Dates: end: 20040504
  4. METHOTREXATE [Concomitant]
     Dates: end: 20040504

REACTIONS (6)
  - ACUTE RESPIRATORY DISTRESS SYNDROME [None]
  - COMA [None]
  - HYPOTENSION [None]
  - LOSS OF CONSCIOUSNESS [None]
  - PHARYNGITIS STREPTOCOCCAL [None]
  - WHITE BLOOD CELL COUNT INCREASED [None]
